FAERS Safety Report 16951926 (Version 1)
Quarter: 2019Q4

REPORT INFORMATION
  Report Type: Spontaneous
  Country: US (occurrence: US)
  Receive Date: 20190904
  Receipt Date: 20190904
  Transmission Date: 20200122
  Serious: Yes (Life-Threatening, Hospitalization)
  Sender: FDA-Public Use
  Company Number: None

PATIENT
  Age: 66 Year
  Sex: Female
  Weight: 39.1 kg

DRUGS (1)
  1. VANCOMYCIN [Suspect]
     Active Substance: VANCOMYCIN
     Indication: DEVICE RELATED INFECTION
     Route: 042
     Dates: start: 20190628

REACTIONS (9)
  - Dyspnoea [None]
  - Red man syndrome [None]
  - Cardio-respiratory arrest [None]
  - Erythema [None]
  - Dysphonia [None]
  - Respiratory tract oedema [None]
  - Anaphylactic reaction [None]
  - Laryngeal oedema [None]
  - Oedema mouth [None]

NARRATIVE: CASE EVENT DATE: 20190628
